FAERS Safety Report 15458970 (Version 1)
Quarter: 2018Q4

REPORT INFORMATION
  Report Type: Spontaneous
  Country: US (occurrence: US)
  Receive Date: 20181003
  Receipt Date: 20181003
  Transmission Date: 20190204
  Serious: Yes (Other)
  Sender: FDA-Public Use
  Company Number: PHHY2018US109670

PATIENT
  Sex: Female

DRUGS (2)
  1. INFLIXIMAB [Suspect]
     Active Substance: INFLIXIMAB
     Indication: LICHENOID KERATOSIS
     Route: 042
  2. PREDNISONE. [Suspect]
     Active Substance: PREDNISONE
     Indication: LICHENOID KERATOSIS
     Dosage: 40-60 MG, QD
     Route: 048

REACTIONS (3)
  - Product use in unapproved indication [Unknown]
  - Therapy non-responder [Unknown]
  - Cutaneous lupus erythematosus [Unknown]
